FAERS Safety Report 7693677-9 (Version None)
Quarter: 2011Q3

REPORT INFORMATION
  Report Type: 
  Country: None (occurrence: None)
  Receive Date: 20110819
  Receipt Date: 20110808
  Transmission Date: 20111222
  Serious: No
  Sender: FDA-Public Use
  Company Number: US-B.I. PHARMACEUTICALS,INC./RIDGEFIELD-2011-BP-19484BP

PATIENT
  Age: 64 Year
  Sex: Male

DRUGS (4)
  1. PRADAXA [Suspect]
     Indication: THROMBOSIS
     Dosage: 300 MG
     Route: 048
     Dates: start: 20110705
  2. NORVASC [Concomitant]
     Indication: HYPERTENSION
     Dosage: 5 MG
     Route: 048
  3. ATACAND [Concomitant]
     Indication: HYPERTENSION
     Dosage: 32 MG
     Route: 048
  4. VITAMIN E [Concomitant]
     Route: 048

REACTIONS (1)
  - ALOPECIA [None]
